FAERS Safety Report 10029931 (Version 2)
Quarter: 2014Q1

REPORT INFORMATION
  Report Type: Spontaneous
  Country: US (occurrence: US)
  Receive Date: 20140323
  Receipt Date: 20140326
  Transmission Date: 20141002
  Serious: No
  Sender: FDA-Public Use
  Company Number: US-TEVA-470353USA

PATIENT
  Sex: 0

DRUGS (1)
  1. PROAIR HFA [Suspect]
     Route: 055

REACTIONS (3)
  - Adverse event [Unknown]
  - Drug ineffective [Unknown]
  - Product quality issue [Unknown]
